FAERS Safety Report 9313708 (Version 2)
Quarter: 2013Q3

REPORT INFORMATION
  Report Type: Spontaneous
  Country: CA (occurrence: CA)
  Receive Date: 20130529
  Receipt Date: 20130712
  Transmission Date: 20140515
  Serious: Yes (Other)
  Sender: FDA-Public Use
  Company Number: CA-ROCHE-1229199

PATIENT
  Sex: Female

DRUGS (6)
  1. XOLAIR [Suspect]
     Indication: ASTHMA
     Route: 058
     Dates: start: 20111011
  2. ADVAIR [Concomitant]
  3. ALVESCO [Concomitant]
  4. REACTINE (CANADA) [Concomitant]
  5. PULMICORT [Concomitant]
  6. NEXIUM [Concomitant]

REACTIONS (4)
  - Pneumonia [Unknown]
  - Asthma [Recovered/Resolved]
  - Infection [Recovered/Resolved]
  - Malaise [Unknown]
